FAERS Safety Report 14066311 (Version 3)
Quarter: 2020Q3

REPORT INFORMATION
  Report Type: Report from Study
  Country: UA (occurrence: UA)
  Receive Date: 20171009
  Receipt Date: 20171108
  Transmission Date: 20201104
  Serious: Yes (Hospitalization, Other)
  Sender: FDA-Public Use
  Company Number: UA-JNJFOC-20170807033

PATIENT
  Age: 71 Year
  Sex: Male

DRUGS (6)
  1. DETRALEX [Concomitant]
     Active Substance: DIOSMIN\HESPERIDIN
     Indication: SKIN ULCER
     Route: 048
     Dates: start: 20141001
  2. IBRUTINIB [Suspect]
     Active Substance: IBRUTINIB
     Indication: CHRONIC LYMPHOCYTIC LEUKAEMIA
     Route: 048
     Dates: start: 20170913
  3. CARSIL [Concomitant]
     Active Substance: DIETARY SUPPLEMENT\HERBALS\MILK THISTLE
     Indication: ANTIVIRAL PROPHYLAXIS
     Route: 048
     Dates: start: 20160803
  4. TRENTAL [Concomitant]
     Active Substance: PENTOXIFYLLINE
     Indication: SKIN ULCER
     Route: 048
     Dates: start: 20141001
  5. CARVEDILOLUM [Concomitant]
     Indication: HYPERTENSION
     Route: 048
     Dates: start: 20150610
  6. IBRUTINIB [Suspect]
     Active Substance: IBRUTINIB
     Indication: CHRONIC LYMPHOCYTIC LEUKAEMIA
     Route: 048
     Dates: start: 20131125, end: 20170822

REACTIONS (5)
  - Orchitis [Recovered/Resolved]
  - Urinary retention [Recovered/Resolved]
  - Benign prostatic hyperplasia [Recovered/Resolved]
  - Calculus bladder [Recovered/Resolved]
  - Bladder tamponade [Recovered/Resolved]

NARRATIVE: CASE EVENT DATE: 20170724
